FAERS Safety Report 15410539 (Version 1)
Quarter: 2018Q3

REPORT INFORMATION
  Report Type: Spontaneous
  Country: IT (occurrence: IT)
  Receive Date: 20180921
  Receipt Date: 20180921
  Transmission Date: 20181010
  Serious: Yes (Other)
  Sender: FDA-Public Use
  Company Number: IT-CELLTRION INC.-2018IT022638

PATIENT

DRUGS (3)
  1. METHOTREXATE. [Concomitant]
     Active Substance: METHOTREXATE
  2. ACITRETIN. [Concomitant]
     Active Substance: ACITRETIN
  3. INFLIXIMAB PFIZER (UNKNOWN) [Suspect]
     Active Substance: INFLIXIMAB
     Indication: PITYRIASIS RUBRA PILARIS
     Dosage: 5 MG/KG, AT WK 0, 4 UP TO 2 MO
     Route: 065

REACTIONS (4)
  - Drug ineffective for unapproved indication [Unknown]
  - Dyspnoea [Unknown]
  - Bradycardia [Unknown]
  - Rash [Unknown]
